FAERS Safety Report 22170530 (Version 1)
Quarter: 2023Q2

REPORT INFORMATION
  Report Type: Spontaneous
  Country: US (occurrence: US)
  Receive Date: 20230404
  Receipt Date: 20230404
  Transmission Date: 20230722
  Serious: No
  Sender: FDA-Public Use
  Company Number: US-GLAXOSMITHKLINE-USCH2023014212

PATIENT

DRUGS (2)
  1. EMERGEN-C [Suspect]
     Active Substance: VITAMINS
     Indication: Nasal congestion
     Dosage: UNK
  2. EMERGEN-C [Suspect]
     Active Substance: VITAMINS
     Indication: Oropharyngeal pain

REACTIONS (2)
  - Drug effective for unapproved indication [Unknown]
  - Product use in unapproved indication [Unknown]
